FAERS Safety Report 6737701-6 (Version None)
Quarter: 2010Q2

REPORT INFORMATION
  Report Type: 
  Country: None (occurrence: None)
  Receive Date: 20100524
  Receipt Date: 20100510
  Transmission Date: 20101027
  Serious: Yes (Other)
  Sender: FDA-Public Use
  Company Number: PHHY2010US29815

PATIENT
  Age: 65 Year
  Sex: Female

DRUGS (2)
  1. VALTURNA [Suspect]
  2. HYDROCHLOROTHIAZIDE [Suspect]

REACTIONS (3)
  - BLOOD PRESSURE INADEQUATELY CONTROLLED [None]
  - OEDEMA PERIPHERAL [None]
  - SURGERY [None]
